FAERS Safety Report 6847758-X (Version None)
Quarter: 2010Q3

REPORT INFORMATION
  Report Type: 
  Country: None (occurrence: None)
  Receive Date: 20100714
  Receipt Date: 20100630
  Transmission Date: 20110219
  Serious: Yes (Other)
  Sender: FDA-Public Use
  Company Number: 014733

PATIENT
  Sex: Male
  Weight: 127.0072 kg

DRUGS (4)
  1. CIMZIA [Suspect]
     Indication: CROHN'S DISEASE
     Dosage: (400 MG 1X/4 WEEKS SUBCUTANEOUS)
     Route: 058
     Dates: start: 20090701
  2. IMURAN [Concomitant]
  3. PHENERGAN HCL [Concomitant]
  4. INSULIN [Concomitant]

REACTIONS (1)
  - DEAFNESS BILATERAL [None]
